FAERS Safety Report 25930497 (Version 3)
Quarter: 2025Q4

REPORT INFORMATION
  Report Type: Spontaneous
  Country: US (occurrence: US)
  Receive Date: 20251016
  Receipt Date: 20251117
  Transmission Date: 20260118
  Serious: No
  Sender: PFIZER
  Company Number: US-PFIZER INC-202500203568

PATIENT
  Age: 26 Year
  Sex: Female

DRUGS (4)
  1. SOMATROPIN [Suspect]
     Active Substance: SOMATROPIN
     Indication: Growth hormone deficiency
     Dosage: 1.2 MG, DAILY
     Route: 058
  2. SOMATROPIN [Suspect]
     Active Substance: SOMATROPIN
     Indication: Hypopituitarism
  3. DIETARY SUPPLEMENT [Concomitant]
     Active Substance: DIETARY SUPPLEMENT
     Indication: Growth hormone deficiency
     Dosage: UNK
  4. DIETARY SUPPLEMENT [Concomitant]
     Active Substance: DIETARY SUPPLEMENT
     Indication: Hypopituitarism

REACTIONS (4)
  - Arthralgia [Unknown]
  - Fatigue [Unknown]
  - Contusion [Unknown]
  - Anaemia [Unknown]
